FAERS Safety Report 10157301 (Version 1)
Quarter: 2014Q2

REPORT INFORMATION
  Report Type: Spontaneous
  Country: US (occurrence: US)
  Receive Date: 20140507
  Receipt Date: 20140507
  Transmission Date: 20141212
  Serious: No
  Sender: FDA-Public Use
  Company Number: US-PFIZER INC-2014123270

PATIENT
  Sex: 0

DRUGS (2)
  1. XELJANZ [Suspect]
     Dosage: 5 MG, 2X/DAY
  2. ACTEMRA [Suspect]
     Dosage: UNK

REACTIONS (2)
  - Drug administration error [Unknown]
  - Drug effect incomplete [Unknown]
